FAERS Safety Report 7388567-5 (Version None)
Quarter: 2011Q2

REPORT INFORMATION
  Report Type: 
  Country: None (occurrence: None)
  Receive Date: 20110401
  Receipt Date: 20110330
  Transmission Date: 20111010
  Serious: Yes (Death)
  Sender: FDA-Public Use
  Company Number: PHFR2011GB01753

PATIENT
  Sex: Female

DRUGS (4)
  1. CLOZARIL [Suspect]
     Indication: SCHIZOPHRENIA
     Dosage: UNK MG, UNK
     Route: 048
     Dates: start: 20040331
  2. LANSOPRAZOLE [Concomitant]
     Dosage: 15 MG, QD
  3. BENDROFLUMETHIAZIDE [Concomitant]
     Dosage: 7.5 MG, QD
  4. CITALOPRAM HYDROBROMIDE [Concomitant]
     Dosage: 20 MG, QD

REACTIONS (1)
  - DEATH [None]
